FAERS Safety Report 17910290 (Version 2)
Quarter: 2020Q4

REPORT INFORMATION
  Report Type: Other
  Country: US (occurrence: US)
  Receive Date: 20200617
  Receipt Date: 20201221
  Transmission Date: 20210113
  Serious: Yes (Other)
  Sender: FDA-Public Use
  Company Number: US-ROCHE-2619145

PATIENT
  Age: 65 Year
  Sex: Female
  Weight: 145.28 kg

DRUGS (14)
  1. DIPHENHYDRAMINE HCL [Concomitant]
     Active Substance: DIPHENHYDRAMINE HYDROCHLORIDE
     Route: 042
  2. ACETAMINOPHEN. [Concomitant]
     Active Substance: ACETAMINOPHEN
     Route: 048
  3. OCREVUS [Suspect]
     Active Substance: OCRELIZUMAB
     Indication: PROGRESSIVE MULTIPLE SCLEROSIS
     Dosage: 300 MG VIAL* 2?DATE OF PREVIOUS INFUSION: 26/NOV/2018?DATE OF NEXT INFUSION: 21/MAY/2019
     Route: 042
     Dates: start: 20170101
  4. ELIQUIS [Concomitant]
     Active Substance: APIXABAN
     Indication: THROMBOSIS
  5. LEVOTHYROXINE. [Concomitant]
     Active Substance: LEVOTHYROXINE
     Indication: HYPOTHYROIDISM
     Dates: start: 1998
  6. METFORMIN [Concomitant]
     Active Substance: METFORMIN HYDROCHLORIDE
     Indication: TYPE 2 DIABETES MELLITUS
  7. CARTIA (UNITED STATES) [Concomitant]
     Indication: RESTRICTIVE CARDIOMYOPATHY
  8. ATORVASTATIN [Concomitant]
     Active Substance: ATORVASTATIN
     Indication: BLOOD CHOLESTEROL INCREASED
  9. METOPROLOL. [Concomitant]
     Active Substance: METOPROLOL
     Indication: HYPERTENSION
  10. DULOXETINE. [Concomitant]
     Active Substance: DULOXETINE
     Indication: PAIN
  11. LANTUS [Concomitant]
     Active Substance: INSULIN GLARGINE
     Indication: TYPE 2 DIABETES MELLITUS
     Dosage: 30 UNITS/DAY
  12. SOLU-MEDROL [Concomitant]
     Active Substance: METHYLPREDNISOLONE SODIUM SUCCINATE
     Route: 042
  13. ACIPHEX [Concomitant]
     Active Substance: RABEPRAZOLE SODIUM
     Indication: GASTROOESOPHAGEAL REFLUX DISEASE
  14. GABAPENTIN. [Concomitant]
     Active Substance: GABAPENTIN
     Indication: PAIN

REACTIONS (15)
  - Muscular weakness [Recovered/Resolved]
  - Fatigue [Unknown]
  - Fall [Unknown]
  - Pain in jaw [Recovered/Resolved]
  - Toothache [Recovered/Resolved]
  - Swelling face [Recovered/Resolved]
  - Product dose omission issue [Unknown]
  - Thrombosis [Recovered/Resolved]
  - Infection [Recovered/Resolved]
  - Ear discomfort [Recovered/Resolved]
  - Skin ulcer [Unknown]
  - Ankylosing spondylitis [Not Recovered/Not Resolved]
  - Tooth fracture [Recovered/Resolved]
  - Hypertension [Unknown]
  - Herpes zoster [Recovered/Resolved]

NARRATIVE: CASE EVENT DATE: 201901
